FAERS Safety Report 9402408 (Version 6)
Quarter: 2013Q4

REPORT INFORMATION
  Report Type: Spontaneous
  Country: PR (occurrence: PR)
  Receive Date: 20130716
  Receipt Date: 20131222
  Transmission Date: 20140711
  Serious: Yes (Hospitalization, Disabling, Other)
  Sender: FDA-Public Use
  Company Number: US-009507513-1307USA007465

PATIENT
  Age: 63 Year
  Sex: Female

DRUGS (3)
  1. PEGINTRON [Suspect]
     Indication: HEPATITIS C
     Dosage: VIAL, UNKNOWN
     Route: 058
     Dates: start: 20130701, end: 20131002
  2. REBETOL [Suspect]
     Indication: HEPATITIS C
     Dosage: UNK
     Route: 048
     Dates: start: 20130701, end: 20131002
  3. VICTRELIS [Suspect]
     Indication: HEPATITIS C
     Dosage: UNK
     Route: 048
     Dates: start: 20130728, end: 20131002

REACTIONS (25)
  - Gait disturbance [Unknown]
  - Haemoglobin decreased [Unknown]
  - Transfusion [Unknown]
  - Skin haemorrhage [Unknown]
  - Sleep disorder [Unknown]
  - Musculoskeletal disorder [Unknown]
  - Blood triglycerides decreased [Unknown]
  - Haematemesis [Recovered/Resolved]
  - Secretion discharge [Recovered/Resolved]
  - Thirst [Unknown]
  - Pigmentation disorder [Unknown]
  - Blister [Unknown]
  - Epistaxis [Unknown]
  - Oral discomfort [Recovered/Resolved]
  - Haemoglobin decreased [Unknown]
  - Pruritus generalised [Unknown]
  - Vomiting [Unknown]
  - Fatigue [Unknown]
  - Headache [Unknown]
  - Fatigue [Unknown]
  - Asthenia [Unknown]
  - Swelling face [Recovered/Resolved]
  - Anaemia [Recovered/Resolved]
  - Asthenia [Unknown]
  - Depressed mood [Unknown]
